FAERS Safety Report 6387086-2 (Version None)
Quarter: 2009Q4

REPORT INFORMATION
  Report Type: 
  Country: None (occurrence: None)
  Receive Date: 20091002
  Receipt Date: 20090209
  Transmission Date: 20100525
  Serious: Yes (Hospitalization)
  Sender: FDA-Public Use
  Company Number: JP-ROCHE-388780

PATIENT
  Sex: Male

DRUGS (5)
  1. TAMIFLU [Suspect]
     Route: 048
     Dates: start: 20041107, end: 20041108
  2. TAMIFLU [Suspect]
     Route: 048
     Dates: start: 20041109, end: 20041109
  3. LOXONIN [Concomitant]
     Route: 048
     Dates: start: 20041106, end: 20041108
  4. FLOMOX [Concomitant]
     Route: 048
     Dates: start: 20041106, end: 20041108
  5. ARLANTO [Concomitant]
     Route: 048
     Dates: start: 20041106, end: 20041108

REACTIONS (1)
  - PNEUMONITIS [None]
